FAERS Safety Report 20031793 (Version 4)
Quarter: 2022Q2

REPORT INFORMATION
  Report Type: Report from Study
  Country: GB (occurrence: GB)
  Receive Date: 20211103
  Receipt Date: 20220405
  Transmission Date: 20220721
  Serious: Yes (Life-Threatening, Hospitalization, Other)
  Sender: FDA-Public Use
  Company Number: GB-ABBVIE-21P-167-4136096-00

PATIENT
  Age: 21 Year
  Sex: Female

DRUGS (15)
  1. VENETOCLAX [Suspect]
     Active Substance: VENETOCLAX
     Indication: Recurrent cancer
     Route: 048
     Dates: start: 20211012, end: 20211012
  2. VENETOCLAX [Suspect]
     Active Substance: VENETOCLAX
     Indication: Refractory cancer
     Route: 048
     Dates: start: 20211013
  3. DEXAMETHASONE [Suspect]
     Active Substance: DEXAMETHASONE
     Indication: Recurrent cancer
     Route: 048
     Dates: start: 20211015, end: 20211019
  4. DEXAMETHASONE [Suspect]
     Active Substance: DEXAMETHASONE
     Indication: Refractory cancer
  5. VINCRISTINE [Suspect]
     Active Substance: VINCRISTINE
     Indication: Recurrent cancer
     Dosage: WEEKLY; MAX 2 MG
     Route: 042
     Dates: start: 20211015, end: 20211015
  6. VINCRISTINE [Suspect]
     Active Substance: VINCRISTINE
     Indication: Refractory cancer
  7. RITUXIMAB [Suspect]
     Active Substance: RITUXIMAB
     Indication: Recurrent cancer
     Dosage: WEEKLY
     Route: 048
     Dates: start: 20211015, end: 20211019
  8. RITUXIMAB [Suspect]
     Active Substance: RITUXIMAB
     Indication: Refractory cancer
  9. SODIUM CHLORIDE [Concomitant]
     Active Substance: SODIUM CHLORIDE
     Indication: Secretion discharge
     Route: 055
     Dates: start: 20211012
  10. LEVOMEPROMAZINE [Concomitant]
     Active Substance: LEVOMEPROMAZINE
     Indication: Neuropathy peripheral
     Route: 048
     Dates: start: 20211019
  11. MORPHINE [Concomitant]
     Active Substance: MORPHINE
     Indication: Neuropathy peripheral
     Route: 048
     Dates: start: 20211019
  12. ACETAMINOPHEN [Concomitant]
     Active Substance: ACETAMINOPHEN
     Indication: Pain prophylaxis
     Route: 048
     Dates: start: 20211014
  13. CARBOCYSTEINE [Concomitant]
     Active Substance: CARBOCYSTEINE
     Indication: Sinusitis
     Route: 048
     Dates: start: 20211012
  14. AMOXICILLIN\CLAVULANATE POTASSIUM [Concomitant]
     Active Substance: AMOXICILLIN\CLAVULANATE POTASSIUM
     Indication: Sinusitis
     Route: 048
     Dates: start: 20211012
  15. METOCLOPRAMIDE [Concomitant]
     Active Substance: METOCLOPRAMIDE
     Indication: Prophylaxis of nausea and vomiting
     Route: 048
     Dates: start: 20211014

REACTIONS (1)
  - Sepsis [Recovered/Resolved]

NARRATIVE: CASE EVENT DATE: 20211023
